FAERS Safety Report 8940426 (Version 1)
Quarter: 2012Q4

REPORT INFORMATION
  Report Type: Report from Study
  Country: GB (occurrence: GB)
  Receive Date: 20121203
  Receipt Date: 20121203
  Transmission Date: 20130627
  Serious: Yes (Hospitalization)
  Sender: FDA-Public Use
  Company Number: GB-ASTRAZENECA-2012SE87159

PATIENT
  Age: 77 Year
  Sex: Male
  Weight: 80.2 kg

DRUGS (9)
  1. VANDETANIB [Suspect]
     Indication: TRANSITIONAL CELL CARCINOMA
     Route: 048
     Dates: start: 20120912, end: 20121115
  2. CARBOPLATIN [Suspect]
     Indication: TRANSITIONAL CELL CARCINOMA
     Dosage: 250 MG 30 min IV infusion on day 1 of each 21 day cycle
     Route: 042
     Dates: start: 20120912
  3. GEMCITABINE [Suspect]
     Indication: TRANSITIONAL CELL CARCINOMA
     Dosage: 1444 MG over a 30 min IV infusion on day 1 and 8 of each 21 day cycle
     Route: 042
     Dates: start: 20120912
  4. DIPYRIDAMOLE [Suspect]
     Route: 048
     Dates: start: 1985
  5. ASPIRIN [Suspect]
     Route: 048
     Dates: start: 1985
  6. SIMVASTATIN [Concomitant]
     Route: 048
     Dates: start: 1995
  7. BISOPROLOL [Concomitant]
     Route: 048
     Dates: start: 1985
  8. EUMOVATE OINTMENT [Concomitant]
     Route: 061
  9. E45 [Concomitant]
     Route: 061
     Dates: start: 20120925

REACTIONS (3)
  - Epistaxis [Recovered/Resolved]
  - Anaemia [None]
  - Platelet count decreased [None]
